FAERS Safety Report 4718205-9 (Version None)
Quarter: 2005Q3

REPORT INFORMATION
  Report Type: 
  Country: None (occurrence: None)
  Receive Date: 20050718
  Receipt Date: 20050428
  Transmission Date: 20060218
  Serious: No
  Sender: FDA-Public Use
  Company Number: 2005000823

PATIENT
  Age: 95 Year
  Sex: Female

DRUGS (2)
  1. TARCEVA [Suspect]
     Indication: NON-SMALL CELL LUNG CANCER
     Dosage: 150 MG (QD), ORAL;  150 MG (TWICE WEEKLY), ORAL
     Route: 048
     Dates: end: 20050427
  2. TARCEVA [Suspect]
     Indication: NON-SMALL CELL LUNG CANCER
     Dosage: 150 MG (QD), ORAL;  150 MG (TWICE WEEKLY), ORAL
     Route: 048
     Dates: start: 20050428

REACTIONS (5)
  - ALOPECIA [None]
  - ANOREXIA [None]
  - DIARRHOEA [None]
  - EYE IRRITATION [None]
  - SKIN EXFOLIATION [None]
